FAERS Safety Report 5951062-1 (Version None)
Quarter: 2008Q4

REPORT INFORMATION
  Report Type: 
  Country: None (occurrence: None)
  Receive Date: 20081112
  Receipt Date: 20081112
  Transmission Date: 20090506
  Serious: No
  Sender: FDA-Public Use
  Company Number: None

PATIENT

DRUGS (1)
  1. KENALOG [Suspect]

REACTIONS (3)
  - FEAR [None]
  - NO THERAPEUTIC RESPONSE [None]
  - NONSPECIFIC REACTION [None]
